FAERS Safety Report 14628369 (Version 2)
Quarter: 2018Q2

REPORT INFORMATION
  Report Type: Report from Study
  Country: None (occurrence: US)
  Receive Date: 20180312
  Receipt Date: 20180416
  Transmission Date: 20180711
  Serious: Yes (Other)
  Sender: FDA-Public Use
  Company Number: US-ABBVIE-18K-163-2272835-00

PATIENT
  Age: 79 Year
  Sex: Female
  Weight: 65.38 kg

DRUGS (2)
  1. HUMIRA [Suspect]
     Active Substance: ADALIMUMAB
     Indication: COLITIS ULCERATIVE
  2. HUMIRA [Suspect]
     Active Substance: ADALIMUMAB
     Indication: RHEUMATOID ARTHRITIS
     Route: 058
     Dates: start: 2012

REACTIONS (3)
  - Intervertebral disc protrusion [Unknown]
  - Ear infection staphylococcal [Recovering/Resolving]
  - Intervertebral disc calcification [Not Recovered/Not Resolved]

NARRATIVE: CASE EVENT DATE: 2014
